FAERS Safety Report 5203754-X (Version None)
Quarter: 2007Q1

REPORT INFORMATION
  Report Type: 
  Country: None (occurrence: None)
  Receive Date: 20070108
  Receipt Date: 20070108
  Transmission Date: 20070707
  Serious: Yes (Life-Threatening, Hospitalization, Disabling, Other)
  Sender: FDA-Public Use
  Company Number: None

PATIENT
  Age: 55 Year
  Sex: Female
  Weight: 68.9467 kg

DRUGS (2)
  1. VIOXX [Suspect]
     Dosage: 50 MG 1X DAILY INTRATRACHEA
     Route: 039
     Dates: start: 19920109, end: 20040912
  2. VIOXX [Concomitant]

REACTIONS (1)
  - CEREBROVASCULAR ACCIDENT [None]
